FAERS Safety Report 22080144 (Version 2)
Quarter: 2023Q1

REPORT INFORMATION
  Report Type: Report from Study
  Country: CN (occurrence: CN)
  Receive Date: 20230309
  Receipt Date: 20230326
  Transmission Date: 20230417
  Serious: Yes (Death, Life-Threatening, Hospitalization)
  Sender: FDA-Public Use
  Company Number: CN-JNJFOC-20230226137

PATIENT
  Age: 59 Year
  Sex: Male
  Weight: 52 kg

DRUGS (47)
  1. DARATUMUMAB [Suspect]
     Active Substance: DARATUMUMAB
     Indication: Plasma cell myeloma refractory
     Route: 058
     Dates: start: 20221014, end: 20230131
  2. UREMIC CLEARANCE [Concomitant]
     Indication: Blood creatinine increased
     Route: 048
     Dates: start: 20221005
  3. ALDEHYDES AND DERIVATIVES [Concomitant]
     Indication: Blood creatinine increased
     Route: 048
     Dates: start: 20221006
  4. TOLVAPTAN [Concomitant]
     Active Substance: TOLVAPTAN
     Indication: Blood creatinine increased
     Route: 048
     Dates: start: 20221008
  5. FLURBIPROFEN [Concomitant]
     Active Substance: FLURBIPROFEN
     Indication: Bone pain
     Route: 061
     Dates: start: 20221008
  6. CALCIUM DOBESILATE [Concomitant]
     Active Substance: CALCIUM DOBESILATE
     Indication: Blood creatinine increased
     Route: 048
     Dates: start: 20221010
  7. FEBUXOSTAT [Concomitant]
     Active Substance: FEBUXOSTAT
     Indication: Hyperuricaemia
     Route: 048
     Dates: start: 20221027
  8. CEFOPERAZONE SODIUM\SULBACTAM SODIUM [Concomitant]
     Active Substance: CEFOPERAZONE SODIUM\SULBACTAM SODIUM
     Indication: Diarrhoea
     Route: 042
     Dates: start: 20221027
  9. ORYZ-ASPERGILLUS ENZYME AND PANCREATIN [Concomitant]
     Indication: Nausea
     Route: 048
     Dates: start: 20221104
  10. HYDROTALCITE [Concomitant]
     Active Substance: HYDROTALCITE
     Indication: Nausea
     Route: 048
     Dates: start: 20221104
  11. PANTOPRAZOLE [Concomitant]
     Active Substance: PANTOPRAZOLE
     Indication: Prophylaxis
     Route: 048
     Dates: start: 20221104
  12. ONDANSETRON HYDROCHLORIDE [Concomitant]
     Active Substance: ONDANSETRON HYDROCHLORIDE
     Indication: Prophylaxis of nausea and vomiting
     Route: 048
     Dates: start: 20221112
  13. ONDANSETRON HYDROCHLORIDE [Concomitant]
     Active Substance: ONDANSETRON HYDROCHLORIDE
     Route: 048
     Dates: start: 20230213, end: 20230215
  14. ONDANSETRON HYDROCHLORIDE [Concomitant]
     Active Substance: ONDANSETRON HYDROCHLORIDE
     Route: 042
     Dates: start: 20230218, end: 20230221
  15. ENTERAL NUTRITIONAL EMULSION (TP-HE) [Concomitant]
     Indication: Prophylaxis
     Route: 048
     Dates: start: 20221112
  16. RO-0622 [Concomitant]
     Active Substance: RO-0622
     Indication: COVID-19
     Route: 048
     Dates: start: 20230116, end: 20230122
  17. VITAMIN C [Concomitant]
     Active Substance: ASCORBIC ACID
     Indication: Prophylaxis
     Route: 042
     Dates: start: 20230215, end: 20230215
  18. LEVETIRACETAM [Concomitant]
     Active Substance: LEVETIRACETAM
     Indication: Seizure
     Route: 048
     Dates: start: 20230213, end: 20230216
  19. LEVETIRACETAM [Concomitant]
     Active Substance: LEVETIRACETAM
     Route: 042
     Dates: start: 20230210, end: 20230213
  20. ESOMEPRAZOLE [Concomitant]
     Active Substance: ESOMEPRAZOLE
     Indication: Gastrointestinal disorder therapy
     Route: 042
     Dates: start: 20230213
  21. MAGNESIUM SULFATE [Concomitant]
     Active Substance: MAGNESIUM SULFATE
     Indication: Seizure
     Route: 042
     Dates: start: 20230211, end: 20230211
  22. MAGNESIUM SULFATE [Concomitant]
     Active Substance: MAGNESIUM SULFATE
     Route: 042
     Dates: start: 20230212, end: 20230212
  23. CALCIUM GLUCONATE [Concomitant]
     Active Substance: CALCIUM GLUCONATE
     Indication: Hypokalaemia
     Route: 042
     Dates: start: 20230211, end: 20230211
  24. CALCIUM GLUCONATE [Concomitant]
     Active Substance: CALCIUM GLUCONATE
     Route: 042
     Dates: start: 20230212, end: 20230212
  25. BUCINNAZINE [Concomitant]
     Active Substance: BUCINNAZINE
     Indication: Plasma cell myeloma
     Route: 030
     Dates: start: 20230210, end: 20230210
  26. DIAZEPAM [Concomitant]
     Active Substance: DIAZEPAM
     Indication: Seizure
     Route: 042
     Dates: start: 20230210, end: 20230210
  27. ERGOCALCIFEROL [Concomitant]
     Active Substance: ERGOCALCIFEROL
     Indication: Hypocalcaemia
     Route: 048
     Dates: start: 20230211
  28. ETHAMSYLATE [Concomitant]
     Active Substance: ETHAMSYLATE
     Indication: Haemorrhage prophylaxis
     Route: 042
     Dates: start: 20230211, end: 20230212
  29. ALBUMIN PREPARED FROM HUMAN PLASMA [Concomitant]
     Indication: Plasma cell myeloma
     Route: 042
     Dates: start: 20230210, end: 20230210
  30. ALBUMIN PREPARED FROM HUMAN PLASMA [Concomitant]
     Indication: Nutritional supplementation
     Route: 042
     Dates: start: 20230131, end: 20230131
  31. ALBUMIN PREPARED FROM HUMAN PLASMA [Concomitant]
     Route: 042
     Dates: start: 20230212, end: 20230212
  32. ALBUMIN PREPARED FROM HUMAN PLASMA [Concomitant]
     Route: 042
     Dates: start: 20230213, end: 20230213
  33. ALBUMIN PREPARED FROM HUMAN PLASMA [Concomitant]
     Route: 042
     Dates: start: 20230214, end: 20230214
  34. ALBUMIN PREPARED FROM HUMAN PLASMA [Concomitant]
     Route: 042
     Dates: start: 20230215, end: 20230215
  35. ALBUMIN PREPARED FROM HUMAN PLASMA [Concomitant]
     Route: 042
     Dates: start: 20230209, end: 20230209
  36. PANTOPRAZOLE SODIUM [Concomitant]
     Active Substance: PANTOPRAZOLE SODIUM
     Indication: Gastrointestinal disorder therapy
     Route: 042
     Dates: start: 20230210, end: 20230213
  37. PANTOPRAZOLE SODIUM [Concomitant]
     Active Substance: PANTOPRAZOLE SODIUM
     Route: 048
     Dates: start: 20221104
  38. CHLORPHENIRAMINE MALEATE [Concomitant]
     Active Substance: CHLORPHENIRAMINE MALEATE
     Indication: Allergy prophylaxis
     Route: 048
     Dates: start: 20230131, end: 20230131
  39. CHLORPHENIRAMINE MALEATE [Concomitant]
     Active Substance: CHLORPHENIRAMINE MALEATE
     Route: 048
     Dates: start: 20230211, end: 20230211
  40. HUMAN RED BLOOD CELL [Concomitant]
     Active Substance: HUMAN RED BLOOD CELL
     Indication: Anaemia
     Dosage: 2 UNITS
     Route: 042
     Dates: start: 20230131, end: 20230131
  41. HUMAN RED BLOOD CELL [Concomitant]
     Active Substance: HUMAN RED BLOOD CELL
     Indication: Nutritional supplementation
     Dosage: 2 UNITS
     Route: 042
     Dates: start: 20230209, end: 20230209
  42. CHLORPHENIRAMINE MALEATE [Concomitant]
     Active Substance: CHLORPHENIRAMINE MALEATE
     Indication: Prophylaxis
     Route: 048
     Dates: start: 20230209, end: 20230209
  43. PLATELETS [Concomitant]
     Active Substance: HUMAN PLATELET, ALLOGENIC
     Indication: Prophylaxis
     Dosage: 1 (UNITS NOT PROVIDED)
     Route: 042
     Dates: start: 20230209, end: 20230209
  44. HUMAN IMMUNOGLOBULIN G [Concomitant]
     Active Substance: HUMAN IMMUNOGLOBULIN G
     Indication: Hypoglobulinaemia
     Route: 042
     Dates: start: 20230217, end: 20230217
  45. HUMAN IMMUNOGLOBULIN G [Concomitant]
     Active Substance: HUMAN IMMUNOGLOBULIN G
     Route: 042
     Dates: start: 20230217, end: 20230217
  46. ENTERAL NUTRITIONAL POWDER (TP) [Concomitant]
     Indication: Malnutrition
     Route: 048
     Dates: start: 20230218
  47. GRANULOCYTE COLONY-STIMULATING FACTOR NOS [Concomitant]
     Active Substance: GRANULOCYTE COLONY-STIMULATING FACTOR NOS
     Indication: Neutrophil count decreased
     Route: 058
     Dates: start: 20230219, end: 20230219

REACTIONS (2)
  - Death [Fatal]
  - Pneumonia [Not Recovered/Not Resolved]

NARRATIVE: CASE EVENT DATE: 20230209
